FAERS Safety Report 24676254 (Version 2)
Quarter: 2024Q4

REPORT INFORMATION
  Report Type: Spontaneous
  Country: US (occurrence: US)
  Receive Date: 20241128
  Receipt Date: 20241223
  Transmission Date: 20250115
  Serious: No
  Sender: SANOFI AVENTIS
  Company Number: US-SANOFI-02311536

PATIENT
  Age: 57 Year
  Sex: Female

DRUGS (3)
  1. MENQUADFI [Suspect]
     Active Substance: NEISSERIA MENINGITIDIS GROUP A CAPSULAR POLYSACCHARIDE TETANUS TOXOID CONJUGATE ANTIGEN\NEISSERIA ME
     Indication: Mycobacterium tuberculosis complex test
     Dosage: .1 MG
     Route: 059
     Dates: start: 20241119
  2. TUBERSOL [Suspect]
     Active Substance: TUBERCULIN PURIFIED PROTEIN DERIVATIVE
     Indication: Tuberculin test
     Dosage: UNK
     Route: 065
  3. INFLUENZA VIRUS VACCINE [Concomitant]
     Active Substance: INFLUENZA VIRUS VACCINE
     Indication: Immunisation
     Dosage: UNK
     Route: 065

REACTIONS (6)
  - Incorrect route of product administration [Unknown]
  - Wrong product administered [Unknown]
  - Vaccination site erythema [Recovered/Resolved]
  - Vaccination site swelling [Recovered/Resolved]
  - Vaccination site warmth [Recovered/Resolved]
  - Vaccination site paraesthesia [Recovered/Resolved]

NARRATIVE: CASE EVENT DATE: 20241101
